FAERS Safety Report 23659610 (Version 1)
Quarter: 2024Q1

REPORT INFORMATION
  Report Type: Spontaneous
  Country: IT (occurrence: IT)
  Receive Date: 20240321
  Receipt Date: 20240321
  Transmission Date: 20240410
  Serious: Yes (Hospitalization)
  Sender: FDA-Public Use
  Company Number: IT-002147023-NVSC2024IT058450

PATIENT
  Age: 49 Year
  Sex: Female

DRUGS (7)
  1. KESIMPTA [Suspect]
     Active Substance: OFATUMUMAB
     Indication: Relapsing-remitting multiple sclerosis
     Dosage: 20 MG, QMO
     Route: 058
     Dates: start: 20220907
  2. KESIMPTA [Suspect]
     Active Substance: OFATUMUMAB
     Dosage: UNK
     Route: 065
     Dates: start: 20240307
  3. TICHE [Concomitant]
     Indication: Product used for unknown indication
     Dosage: UNK
     Route: 065
  4. AMLODIPINE\INDAPAMIDE\PERINDOPRIL [Concomitant]
     Active Substance: AMLODIPINE\INDAPAMIDE\PERINDOPRIL
     Indication: Product used for unknown indication
     Dosage: UNK
     Route: 065
  5. ROSUVASTATIN [Concomitant]
     Active Substance: ROSUVASTATIN
     Indication: Product used for unknown indication
     Dosage: UNK
     Route: 065
  6. MONTMORILLONITE [Concomitant]
     Active Substance: MONTMORILLONITE
     Indication: Product used for unknown indication
     Dosage: UNK
     Route: 065
  7. DULOXETINE [Concomitant]
     Active Substance: DULOXETINE
     Indication: Product used for unknown indication
     Dosage: UNK
     Route: 065

REACTIONS (5)
  - Body temperature increased [Recovered/Resolved]
  - Diplopia [Recovered/Resolved]
  - Cough [Recovered/Resolved]
  - Paresis [Recovered/Resolved]
  - Viral infection [Recovered/Resolved]

NARRATIVE: CASE EVENT DATE: 20240228
